FAERS Safety Report 5320125-6 (Version None)
Quarter: 2007Q2

REPORT INFORMATION
  Report Type: 
  Country: None (occurrence: None)
  Receive Date: 20070502
  Receipt Date: 20070419
  Transmission Date: 20071010
  Serious: Yes (Other)
  Sender: FDA-Public Use
  Company Number: 2007317990

PATIENT
  Sex: Male
  Weight: 81.6475 kg

DRUGS (3)
  1. BENADRYL [Suspect]
     Dosage: ORAL
     Route: 048
  2. PAXIL [Concomitant]
  3. ZANTAC [Concomitant]

REACTIONS (1)
  - SOMNOLENCE [None]
